FAERS Safety Report 4819241-4 (Version None)
Quarter: 2005Q4

REPORT INFORMATION
  Report Type: 
  Country: None (occurrence: None)
  Receive Date: 20051103
  Receipt Date: 20050809
  Transmission Date: 20060501
  Serious: Yes (Hospitalization, Disabling)
  Sender: FDA-Public Use
  Company Number: US-MERCK-0508USA01842

PATIENT
  Age: 53 Year
  Sex: Female
  Weight: 127 kg

DRUGS (18)
  1. VIOXX [Suspect]
     Indication: ARTHRALGIA
     Route: 048
     Dates: start: 20020206, end: 20040930
  2. VIOXX [Suspect]
     Route: 048
     Dates: start: 20000401
  3. VIOXX [Suspect]
     Route: 048
     Dates: start: 20000322, end: 20000401
  4. VIOXX [Suspect]
     Indication: ARTHRITIS
     Route: 048
     Dates: start: 20020206, end: 20040930
  5. VIOXX [Suspect]
     Route: 048
     Dates: start: 20000401
  6. VIOXX [Suspect]
     Route: 048
     Dates: start: 20000322, end: 20000401
  7. HYDROCODONE BITARTRATE [Concomitant]
     Indication: ARTHRALGIA
     Route: 065
  8. VERELAN [Concomitant]
     Indication: HYPERTENSION
     Route: 065
     Dates: end: 20030901
  9. LOPRESSOR [Concomitant]
     Indication: HYPERTENSION
     Route: 048
  10. LISINOPRIL [Concomitant]
     Indication: HYPERTENSION
     Route: 065
     Dates: start: 19970101
  11. COUMADIN [Concomitant]
     Indication: KNEE OPERATION
     Route: 065
     Dates: start: 20011201, end: 20020101
  12. ANTHOCYANINS (UNSPECIFIED) [Concomitant]
     Indication: HYPERSENSITIVITY
     Route: 065
     Dates: start: 19950101
  13. ANTHOCYANINS (UNSPECIFIED) [Concomitant]
     Indication: RASH
     Route: 065
     Dates: start: 19950101
  14. TEMAZEPAM [Concomitant]
     Indication: INSOMNIA
     Route: 065
  15. TEMAZEPAM [Concomitant]
     Indication: ANXIETY
     Route: 065
  16. IBUPROFEN [Concomitant]
     Indication: PAIN
     Route: 065
     Dates: start: 19950101
  17. ZESTRIL [Concomitant]
     Indication: HYPERTENSION
     Route: 065
  18. TYLENOL (CAPLET) [Concomitant]
     Indication: MIGRAINE
     Route: 065
     Dates: start: 19950101

REACTIONS (16)
  - ACUTE MYOCARDIAL INFARCTION [None]
  - ADNEXA UTERI MASS [None]
  - AORTIC VALVE SCLEROSIS [None]
  - ATRIOVENTRICULAR BLOCK SECOND DEGREE [None]
  - BRADYCARDIA [None]
  - CORONARY ARTERY DISEASE [None]
  - DIABETES MELLITUS NON-INSULIN-DEPENDENT [None]
  - HAEMATOCHEZIA [None]
  - HYPERCHOLESTEROLAEMIA [None]
  - HYPOTENSION [None]
  - PATELLOFEMORAL PAIN SYNDROME [None]
  - PSORIASIS [None]
  - ROTATOR CUFF SYNDROME [None]
  - SEBORRHOEIC DERMATITIS [None]
  - SEBORRHOEIC KERATOSIS [None]
  - STRESS INCONTINENCE [None]
